FAERS Safety Report 7899345-2 (Version None)
Quarter: 2011Q4

REPORT INFORMATION
  Report Type: 
  Country: None (occurrence: None)
  Receive Date: 20111107
  Receipt Date: 20110913
  Transmission Date: 20120403
  Serious: No
  Sender: FDA-Public Use
  Company Number: US-AMGEN-USASP2011047036

PATIENT
  Age: 56 Year
  Sex: Male

DRUGS (1)
  1. ENBREL [Suspect]
     Indication: RHEUMATOID ARTHRITIS
     Dosage: 50 MG, QWK
     Dates: start: 20100812

REACTIONS (7)
  - MUSCULOSKELETAL PAIN [None]
  - NODULE [None]
  - THERAPEUTIC RESPONSE DECREASED [None]
  - PAIN OF SKIN [None]
  - JOINT SWELLING [None]
  - PAIN IN EXTREMITY [None]
  - OEDEMA PERIPHERAL [None]
